FAERS Safety Report 4540939-X (Version None)
Quarter: 2004Q4

REPORT INFORMATION
  Report Type: 
  Country: None (occurrence: None)
  Receive Date: 20041229
  Receipt Date: 20041222
  Transmission Date: 20050328
  Serious: Yes (Hospitalization)
  Sender: FDA-Public Use
  Company Number: FR-GLAXOSMITHKLINE-B0362645A

PATIENT
  Age: 72 Year
  Sex: Male
  Weight: 85 kg

DRUGS (11)
  1. ZOPHREN [Suspect]
     Dosage: 8MG PER DAY
     Route: 042
     Dates: start: 20041015, end: 20041125
  2. SOLU-MEDROL [Suspect]
     Dosage: 120MG PER DAY
     Route: 042
     Dates: start: 20041015, end: 20041125
  3. GEMZAR [Suspect]
     Dosage: 1900MG PER DAY
     Route: 042
     Dates: start: 20041015, end: 20041125
  4. NISISCO [Concomitant]
     Route: 048
  5. HEMIGOXINE NATIVELLE [Concomitant]
     Dosage: .125MG PER DAY
     Route: 048
  6. AMLODIPINE [Concomitant]
     Dosage: 10MG PER DAY
     Route: 048
  7. VASTEN [Concomitant]
     Route: 048
  8. KARDEGIC [Concomitant]
     Route: 048
  9. INSULIN [Concomitant]
  10. PREVISCAN [Concomitant]
  11. LASILIX [Concomitant]

REACTIONS (6)
  - ACUTE PULMONARY OEDEMA [None]
  - COUGH [None]
  - DYSPNOEA [None]
  - HYPOCAPNIA [None]
  - HYPOXIA [None]
  - PULMONARY OEDEMA [None]
